FAERS Safety Report 9464911 (Version 3)
Quarter: 2013Q3

REPORT INFORMATION
  Report Type: Report from Study
  Country: SG (occurrence: SG)
  Receive Date: 20130819
  Receipt Date: 20130829
  Transmission Date: 20140515
  Serious: Yes (Life-Threatening, Hospitalization, Other)
  Sender: FDA-Public Use
  Company Number: SG-BRISTOL-MYERS SQUIBB COMPANY-15804982

PATIENT
  Age: 76 Year
  Sex: Male

DRUGS (7)
  1. APIXABAN [Suspect]
     Indication: THROMBOSIS PROPHYLAXIS
     Route: 048
     Dates: start: 20110317
  2. BISOPROLOL FUMARATE [Concomitant]
     Dates: start: 20100507
  3. DIGOXIN [Concomitant]
     Dates: start: 20100506
  4. FUROSEMIDE [Concomitant]
     Dates: start: 20100506
  5. OMEPRAZOLE [Concomitant]
     Dates: start: 20100509
  6. LOSARTAN POTASSIUM [Concomitant]
     Dates: start: 20100507
  7. DILTIAZEM HCL [Concomitant]
     Dates: start: 20110520

REACTIONS (8)
  - Pancreatitis [Recovered/Resolved with Sequelae]
  - Cardiac failure congestive [Unknown]
  - Colitis [Recovered/Resolved with Sequelae]
  - Anaemia [Recovered/Resolved with Sequelae]
  - Thrombophlebitis [Recovered/Resolved]
  - Peripheral vascular disorder [Recovered/Resolved]
  - Gastroenteritis [Recovered/Resolved]
  - Intraductal papillary-mucinous carcinoma of pancreas [Recovered/Resolved with Sequelae]
